FAERS Safety Report 20721919 (Version 1)
Quarter: 2022Q2

REPORT INFORMATION
  Report Type: Spontaneous
  Country: GB (occurrence: None)
  Receive Date: 20220418
  Receipt Date: 20220418
  Transmission Date: 20220720
  Serious: Yes (Other)
  Sender: FDA-Public Use
  Company Number: None

PATIENT
  Age: 20 Year
  Sex: Female

DRUGS (5)
  1. COSMETICS [Suspect]
     Active Substance: COSMETICS
     Indication: Product used for unknown indication
     Dates: start: 20220411, end: 20220412
  2. Ridgevidon [Concomitant]
  3. Doxcycline [Concomitant]
  4. FEXOFENADINE HYDROCHLORIDE [Concomitant]
     Active Substance: FEXOFENADINE HYDROCHLORIDE
  5. Aveeno moisturiser [Concomitant]

REACTIONS (2)
  - Chemical burn [None]
  - Insomnia [None]

NARRATIVE: CASE EVENT DATE: 20220412
